FAERS Safety Report 21443893 (Version 3)
Quarter: 2022Q4

REPORT INFORMATION
  Report Type: Other
  Country: AU (occurrence: AU)
  Receive Date: 20221012
  Receipt Date: 20221202
  Transmission Date: 20230112
  Serious: No
  Sender: FDA-Public Use
  Company Number: AU-TOLMAR, INC.-22AU036866

PATIENT
  Sex: Male

DRUGS (1)
  1. ELIGARD [Suspect]
     Active Substance: LEUPROLIDE ACETATE
     Indication: Prostate cancer
     Dosage: 22.5 MILLIGRAM, Q 3 MONTH

REACTIONS (7)
  - Musculoskeletal discomfort [Unknown]
  - Pain [Unknown]
  - Joint range of motion decreased [Unknown]
  - Tendonitis [Unknown]
  - Pollakiuria [Unknown]
  - Fatigue [Unknown]
  - Arthralgia [Unknown]
